FAERS Safety Report 8793097 (Version 2)
Quarter: 2015Q1

REPORT INFORMATION
  Report Type: Report from Study
  Country: US (occurrence: US)
  Receive Date: 20120917
  Receipt Date: 20150330
  Transmission Date: 20150721
  Serious: Yes (Death)
  Sender: FDA-Public Use
  Company Number: US-ROCHE-1126754

PATIENT
  Sex: Male
  Weight: 60 kg

DRUGS (3)
  1. AVASTIN [Suspect]
     Active Substance: BEVACIZUMAB
     Indication: BONE CANCER
     Route: 042
     Dates: start: 20060307
  2. TEMODAR [Concomitant]
     Active Substance: TEMOZOLOMIDE
  3. IRINOTECAN [Concomitant]
     Active Substance: IRINOTECAN

REACTIONS (2)
  - Off label use [Unknown]
  - Death [Fatal]
